FAERS Safety Report 9391275 (Version 5)
Quarter: 2013Q3

REPORT INFORMATION
  Report Type: Spontaneous
  Country: IT (occurrence: IT)
  Receive Date: 20130709
  Receipt Date: 20130927
  Transmission Date: 20140515
  Serious: Yes (Hospitalization)
  Sender: FDA-Public Use
  Company Number: IT-SANOFI-AVENTIS-2013SA068285

PATIENT
  Age: 83 Year
  Sex: Female

DRUGS (7)
  1. CEFIXORAL [Suspect]
     Indication: COUGH
     Route: 048
     Dates: start: 20130415, end: 20130419
  2. LEVOFLOXACIN [Suspect]
     Indication: COUGH
     Route: 048
     Dates: start: 20130415
  3. LASIX [Suspect]
     Indication: CARDIAC VALVE DISEASE
     Route: 048
     Dates: start: 20120421
  4. RATACAND [Suspect]
     Indication: CARDIAC VALVE DISEASE
     Route: 048
     Dates: start: 20120421
  5. CANRENONE [Concomitant]
  6. LANSOPRAZOLE [Concomitant]
  7. ACETYLSALICYLIC ACID [Concomitant]

REACTIONS (4)
  - Asthenia [Recovering/Resolving]
  - Renal failure acute [Recovering/Resolving]
  - Nausea [Recovering/Resolving]
  - Vomiting [Recovering/Resolving]
